FAERS Safety Report 25585711 (Version 1)
Quarter: 2025Q3

REPORT INFORMATION
  Report Type: Spontaneous
  Country: EU (occurrence: EU)
  Receive Date: 20250721
  Receipt Date: 20250721
  Transmission Date: 20251020
  Serious: Yes (Life-Threatening, Other)
  Sender: PFIZER
  Company Number: EU-PFIZER INC-202500145169

PATIENT
  Sex: Female

DRUGS (1)
  1. LORLATINIB [Suspect]
     Active Substance: LORLATINIB

REACTIONS (3)
  - Cerebrovascular accident [Unknown]
  - Coma [Unknown]
  - Decreased immune responsiveness [Unknown]
